FAERS Safety Report 6316232-1 (Version None)
Quarter: 2009Q3

REPORT INFORMATION
  Report Type: 
  Country: None (occurrence: None)
  Receive Date: 20090820
  Receipt Date: 20090810
  Transmission Date: 20100115
  Serious: Yes (Death, Other)
  Sender: FDA-Public Use
  Company Number: IN-BAXTER-2009BH009169

PATIENT
  Age: 50 Year
  Sex: Female

DRUGS (3)
  1. DIANEAL [Suspect]
     Indication: RENAL FAILURE CHRONIC
     Route: 033
     Dates: start: 20090501, end: 20090523
  2. DIANEAL [Suspect]
     Route: 033
     Dates: start: 20080701, end: 20090501
  3. DIANEAL [Suspect]
     Route: 033
     Dates: start: 20090501, end: 20090523

REACTIONS (3)
  - CARDIAC ARREST [None]
  - PERITONEAL DIALYSIS COMPLICATION [None]
  - PERITONITIS [None]
